FAERS Safety Report 9878457 (Version 2)
Quarter: 2014Q1

REPORT INFORMATION
  Report Type: Spontaneous
  Country: DE (occurrence: DE)
  Receive Date: 20140206
  Receipt Date: 20140227
  Transmission Date: 20141002
  Serious: Yes (Other)
  Sender: FDA-Public Use
  Company Number: DE-SA-2014SA012553

PATIENT
  Age: 32 Year
  Sex: Male

DRUGS (4)
  1. LEMTRADA [Suspect]
     Indication: MULTIPLE SCLEROSIS RELAPSE
     Route: 041
     Dates: start: 20140113, end: 20140117
  2. BACLOFEN [Concomitant]
     Route: 048
     Dates: start: 20121213
  3. FAMPYRA [Concomitant]
     Route: 048
     Dates: start: 20130228
  4. ACICLOVIR [Concomitant]
     Dates: start: 20140206, end: 20140215

REACTIONS (4)
  - Deafness [Recovering/Resolving]
  - Laryngitis [Recovering/Resolving]
  - Ear infection [Recovering/Resolving]
  - Pharyngitis [Recovering/Resolving]
